FAERS Safety Report 10162478 (Version 2)
Quarter: 2014Q2

REPORT INFORMATION
  Report Type: Spontaneous
  Country: BE (occurrence: BE)
  Receive Date: 20140509
  Receipt Date: 20140509
  Transmission Date: 20141212
  Serious: Yes (Hospitalization, Other)
  Sender: FDA-Public Use
  Company Number: PHHY2014BE052520

PATIENT
  Age: 53 Year
  Sex: Female

DRUGS (2)
  1. EVEROLIMUS [Suspect]
     Dosage: 10 MG, UNK
     Dates: start: 20140228, end: 20140422
  2. AROMASIN [Concomitant]
     Dates: start: 20140228

REACTIONS (15)
  - Hypokalaemia [Unknown]
  - Diarrhoea [Unknown]
  - Weight decreased [Unknown]
  - Fatigue [Unknown]
  - Nausea [Unknown]
  - Vomiting [Unknown]
  - Renal impairment [Unknown]
  - Blood creatinine increased [Unknown]
  - Decreased appetite [Unknown]
  - Ageusia [Unknown]
  - Rash [Unknown]
  - Dyspnoea [Unknown]
  - General physical health deterioration [Unknown]
  - Drug intolerance [Unknown]
  - Liver function test abnormal [Unknown]
